FAERS Safety Report 24697773 (Version 3)
Quarter: 2025Q1

REPORT INFORMATION
  Report Type: Spontaneous
  Country: US (occurrence: US)
  Receive Date: 20241204
  Receipt Date: 20250310
  Transmission Date: 20250408
  Serious: No
  Sender: SANOFI AVENTIS
  Company Number: US-SA-2024SA354839

PATIENT
  Age: 68 Year
  Sex: Male
  Weight: 95.7 kg

DRUGS (2)
  1. DUPIXENT [Suspect]
     Active Substance: DUPILUMAB
     Indication: Chronic rhinosinusitis with nasal polyps
     Dosage: 300 MG, QOW
     Route: 058
     Dates: start: 20241115
  2. DUPIXENT [Suspect]
     Active Substance: DUPILUMAB
     Indication: Nasal polyps

REACTIONS (10)
  - Constipation [Recovered/Resolved]
  - Haemorrhage [Recovered/Resolved]
  - Erythema [Unknown]
  - Hypoaesthesia [Recovering/Resolving]
  - Condition aggravated [Unknown]
  - Paraesthesia [Not Recovered/Not Resolved]
  - Cyanosis [Not Recovered/Not Resolved]
  - Skin indentation [Not Recovered/Not Resolved]
  - Gait disturbance [Recovering/Resolving]
  - Weight increased [Recovering/Resolving]

NARRATIVE: CASE EVENT DATE: 20241101
